FAERS Safety Report 25581649 (Version 1)
Quarter: 2025Q3

REPORT INFORMATION
  Report Type: Spontaneous
  Country: IN (occurrence: IN)
  Receive Date: 20250719
  Receipt Date: 20250719
  Transmission Date: 20251020
  Serious: Yes (Other)
  Sender: RANBAXY
  Company Number: IN-SUN PHARMACEUTICAL INDUSTRIES LTD-2025R1-517010

PATIENT
  Age: 24 Year
  Sex: Male

DRUGS (4)
  1. CLOTRIMAZOLE [Suspect]
     Active Substance: CLOTRIMAZOLE
     Indication: Syphilis
     Route: 061
  2. FLUCONAZOLE [Suspect]
     Active Substance: FLUCONAZOLE
     Indication: Syphilis
     Dosage: 150 MILLIGRAM, WEEKLY
     Route: 065
  3. DOLUTEGRAVIR\LAMIVUDINE\TENOFOVIR DISOPROXIL FUMARATE [Suspect]
     Active Substance: DOLUTEGRAVIR\LAMIVUDINE\TENOFOVIR DISOPROXIL FUMARATE
     Indication: Syphilis
     Route: 065
  4. PENICILLIN G BENZATHINE [Suspect]
     Active Substance: PENICILLIN G BENZATHINE
     Indication: Syphilis
     Route: 030

REACTIONS (3)
  - Jarisch-Herxheimer reaction [Unknown]
  - Disease recurrence [Unknown]
  - Rash [Unknown]
